FAERS Safety Report 5068777-2 (Version None)
Quarter: 2006Q3

REPORT INFORMATION
  Report Type: 
  Country: None (occurrence: None)
  Receive Date: 20060802
  Receipt Date: 20060328
  Transmission Date: 20061208
  Serious: No
  Sender: FDA-Public Use
  Company Number: US-BRISTOL-MYERS SQUIBB COMPANY-13328711

PATIENT
  Age: 81 Year
  Sex: Male
  Weight: 83 kg

DRUGS (4)
  1. COUMADIN [Suspect]
     Indication: ATRIAL FIBRILLATION
  2. COREG [Concomitant]
  3. LISINOPRIL [Concomitant]
  4. LOVENOX [Concomitant]
     Dates: start: 20060318, end: 20060324

REACTIONS (1)
  - INTERNATIONAL NORMALISED RATIO DECREASED [None]
